FAERS Safety Report 4781160-X (Version None)
Quarter: 2005Q3

REPORT INFORMATION
  Report Type: 
  Country: None (occurrence: None)
  Receive Date: 20050927
  Receipt Date: 20050927
  Transmission Date: 20060218
  Serious: Yes (Hospitalization, Other)
  Sender: FDA-Public Use
  Company Number: None

PATIENT
  Sex: Female
  Weight: 116 kg

DRUGS (7)
  1. CISPLATIN [Suspect]
     Indication: SMALL CELL LUNG CANCER STAGE UNSPECIFIED
     Dosage: SEE IMAGE
     Dates: start: 20050912
  2. IRINOTECAN HCL [Suspect]
     Dosage: SEE IMAGE
     Dates: start: 20050912
  3. CARBOPLATIN [Suspect]
     Dosage: SEE IMAGE
     Dates: start: 20050912, end: 20050912
  4. ETOPOSIDE [Suspect]
     Dosage: SEE IMAGE
     Dates: start: 20050912, end: 20050914
  5. LEXAPRO [Concomitant]
  6. SYNTHROID [Concomitant]
  7. ZETIA [Concomitant]

REACTIONS (1)
  - FEBRILE NEUTROPENIA [None]
